FAERS Safety Report 5254370-5 (Version None)
Quarter: 2007Q1

REPORT INFORMATION
  Report Type: 
  Country: None (occurrence: None)
  Receive Date: 20070302
  Receipt Date: 20070222
  Transmission Date: 20070707
  Serious: Yes (Life-Threatening)
  Sender: FDA-Public Use
  Company Number: GB-ABBOTT-07P-167-0360110-00

PATIENT
  Age: 60 Year
  Sex: Female

DRUGS (4)
  1. VALPROATE SODIUM [Suspect]
     Indication: BIPOLAR DISORDER
     Route: 048
     Dates: start: 20020123, end: 20060510
  2. ECHINACEA EXTRACT [Concomitant]
     Indication: DRUG USE FOR UNKNOWN INDICATION
     Route: 048
  3. NITRAZEPAM [Concomitant]
     Indication: INSOMNIA
     Route: 065
  4. VITAMINS [Concomitant]
     Indication: DRUG USE FOR UNKNOWN INDICATION
     Route: 065

REACTIONS (3)
  - ANAEMIA HAEMOLYTIC AUTOIMMUNE [None]
  - ANTIPHOSPHOLIPID ANTIBODIES POSITIVE [None]
  - SYSTEMIC LUPUS ERYTHEMATOSUS [None]
